FAERS Safety Report 14859562 (Version 1)
Quarter: 2018Q2

REPORT INFORMATION
  Report Type: Spontaneous
  Country: US (occurrence: US)
  Receive Date: 20180508
  Receipt Date: 20180508
  Transmission Date: 20180711
  Serious: No
  Sender: FDA-Public Use
  Company Number: US-PFIZER INC-2018182615

PATIENT
  Age: 47 Year
  Sex: Female
  Weight: 63.5 kg

DRUGS (2)
  1. CHANTIX [Suspect]
     Active Substance: VARENICLINE TARTRATE
     Indication: SMOKING CESSATION THERAPY
     Dosage: UNK, 2X/DAY
  2. RITUXIMAB. [Concomitant]
     Active Substance: RITUXIMAB
     Route: 042

REACTIONS (3)
  - Intentional product misuse [Unknown]
  - Malaise [Not Recovered/Not Resolved]
  - Splenomegaly [Unknown]

NARRATIVE: CASE EVENT DATE: 201711
